FAERS Safety Report 24554774 (Version 1)
Quarter: 2024Q4

REPORT INFORMATION
  Report Type: Report from Study
  Country: US (occurrence: US)
  Receive Date: 20241028
  Receipt Date: 20241028
  Transmission Date: 20250115
  Serious: Yes (Death)
  Sender: AMNEAL
  Company Number: US-AMNEAL PHARMACEUTICALS-2024-AMRX-03866

PATIENT
  Age: 75 Year
  Sex: Male

DRUGS (1)
  1. CARBIDOPA\LEVODOPA [Suspect]
     Active Substance: CARBIDOPA\LEVODOPA
     Indication: Product used for unknown indication
     Dosage: (23.75-95MG) 3 CAPSULES BY MOUTH FIVE TIMES A DAY TAKING 3 CAPSULES EVERY 3.5 HOURS AND THEN TAKING
     Route: 048

REACTIONS (1)
  - Death [Fatal]

NARRATIVE: CASE EVENT DATE: 20241007
